FAERS Safety Report 9918671 (Version 2)
Quarter: 2014Q1

REPORT INFORMATION
  Report Type: Report from Study
  Country: BE (occurrence: BE)
  Receive Date: 20140224
  Receipt Date: 20140224
  Transmission Date: 20141002
  Serious: Yes (Other)
  Sender: FDA-Public Use
  Company Number: BE-BEH-2013035078

PATIENT
  Age: 69 Year
  Sex: Male

DRUGS (7)
  1. PRIVIGEN [Suspect]
     Dosage: INFUSION RATE AT START 25ML/H; MAX. INFUSION RATE 403 ML/H
     Route: 042
     Dates: start: 20130307, end: 20130307
  2. ASAFLOW [Concomitant]
     Indication: PROPHYLAXIS
     Dosage: START DATE MAR-2010
     Route: 048
  3. EMCONCOR [Concomitant]
     Dosage: START DATE 2010
     Route: 048
  4. TOTALIP [Concomitant]
     Dosage: START DATE 2004
     Route: 048
  5. OMEPRAZOL [Concomitant]
     Dosage: START DATE FEB-2006
     Route: 048
  6. RANITIDINE [Concomitant]
     Dosage: START DATE FEB-2006
     Route: 048
  7. REDOMEX [Concomitant]
     Dosage: FROM JUL-2012 UNTIL OCT-2012
     Route: 048

REACTIONS (1)
  - Hypersensitivity [Recovered/Resolved]
